FAERS Safety Report 19267868 (Version 1)
Quarter: 2021Q2

REPORT INFORMATION
  Report Type: Spontaneous
  Country: US (occurrence: US)
  Receive Date: 20210518
  Receipt Date: 20210518
  Transmission Date: 20210717
  Serious: Yes (Death)
  Sender: FDA-Public Use
  Company Number: US-MELINTA THERAPEUTICS, LLC-US-MLNT-21-00052

PATIENT
  Sex: Male

DRUGS (6)
  1. MINOCYCLINE [Suspect]
     Active Substance: MINOCYCLINE HYDROCHLORIDE
     Indication: BURKHOLDERIA CEPACIA COMPLEX INFECTION
     Dosage: NOT PROVIDED.
  2. VABOMERE [Suspect]
     Active Substance: MEROPENEM\VABORBACTAM
     Indication: BURKHOLDERIA CEPACIA COMPLEX INFECTION
  3. VABOMERE [Suspect]
     Active Substance: MEROPENEM\VABORBACTAM
     Indication: PANCREATIC ABSCESS
     Dosage: NOT PROVIDED.
  4. PIPERACILLIN/TAZOBACTAM [Suspect]
     Active Substance: PIPERACILLIN SODIUM\TAZOBACTAM SODIUM
     Indication: PANCREATIC ABSCESS
     Dosage: NOT PROVIDED.
  5. PIPERACILLIN/TAZOBACTAM [Suspect]
     Active Substance: PIPERACILLIN SODIUM\TAZOBACTAM SODIUM
     Indication: BURKHOLDERIA CEPACIA COMPLEX INFECTION
  6. MINOCYCLINE [Suspect]
     Active Substance: MINOCYCLINE HYDROCHLORIDE
     Indication: PANCREATIC ABSCESS

REACTIONS (5)
  - Off label use [Fatal]
  - Condition aggravated [Fatal]
  - Burkholderia cepacia complex infection [Fatal]
  - Drug ineffective for unapproved indication [Fatal]
  - Pancreatic abscess [Fatal]
